FAERS Safety Report 8255119-4 (Version None)
Quarter: 2012Q2

REPORT INFORMATION
  Report Type: 
  Country: None (occurrence: None)
  Receive Date: 20120403
  Receipt Date: 20120323
  Transmission Date: 20120825
  Serious: Yes (Hospitalization, Other)
  Sender: FDA-Public Use
  Company Number: US-ALEXION-A201200448

PATIENT
  Sex: Male

DRUGS (1)
  1. SOLIRIS [Suspect]
     Indication: PAROXYSMAL NOCTURNAL HAEMOGLOBINURIA
     Dosage: UNK
     Route: 042

REACTIONS (8)
  - OCULAR ICTERUS [None]
  - HAEMOGLOBIN ABNORMAL [None]
  - VIRAL INFECTION [None]
  - LIVER DISORDER [None]
  - RENAL DISORDER [None]
  - RENAL FAILURE [None]
  - HAEMOLYSIS [None]
  - TONGUE DISCOLOURATION [None]
